FAERS Safety Report 12515982 (Version 1)
Quarter: 2016Q2

REPORT INFORMATION
  Report Type: Spontaneous
  Country: PL (occurrence: PL)
  Receive Date: 20160630
  Receipt Date: 20160630
  Transmission Date: 20160815
  Serious: Yes (Other)
  Sender: FDA-Public Use
  Company Number: PL-TEVA-670883ISR

PATIENT
  Sex: Female

DRUGS (1)
  1. NYSTATYNA TEVA [Suspect]
     Active Substance: NYSTATIN
     Dates: start: 20160617

REACTIONS (1)
  - Haemorrhage [Not Recovered/Not Resolved]

NARRATIVE: CASE EVENT DATE: 201606
